FAERS Safety Report 7869463-3 (Version None)
Quarter: 2011Q4

REPORT INFORMATION
  Report Type: 
  Country: None (occurrence: None)
  Receive Date: 20111028
  Receipt Date: 20111028
  Transmission Date: 20120403
  Serious: Yes (Death)
  Sender: FDA-Public Use
  Company Number: None

PATIENT
  Age: 3 Year
  Sex: Male

DRUGS (1)
  1. DIPHENHYDRAMINE HCL [Suspect]
     Dates: start: 20100901, end: 20110916

REACTIONS (6)
  - ABNORMAL BEHAVIOUR [None]
  - UNRESPONSIVE TO STIMULI [None]
  - TREATMENT NONCOMPLIANCE [None]
  - BRAIN INJURY [None]
  - HEADACHE [None]
  - CONVULSION [None]
